FAERS Safety Report 7618189-X (Version None)
Quarter: 2011Q3

REPORT INFORMATION
  Report Type: 
  Country: None (occurrence: None)
  Receive Date: 20110718
  Receipt Date: 20100708
  Transmission Date: 20111222
  Serious: Yes (Hospitalization)
  Sender: FDA-Public Use
  Company Number: US-GLAXOSMITHKLINE-A0870702A

PATIENT
  Age: 50 Year
  Sex: Male
  Weight: 79.5 kg

DRUGS (7)
  1. LOVASTATIN [Concomitant]
  2. CELEXA [Concomitant]
  3. AVANDIA [Suspect]
     Indication: DIABETES MELLITUS
     Dosage: 4MG PER DAY
     Route: 048
     Dates: start: 20060401, end: 20060901
  4. AVANDAMET [Suspect]
     Route: 048
     Dates: start: 20060403
  5. ENALAPRIL MALEATE [Concomitant]
  6. CARAFATE [Concomitant]
  7. INSULIN [Concomitant]

REACTIONS (2)
  - CARDIAC FAILURE CONGESTIVE [None]
  - CORONARY ARTERY DISEASE [None]
